FAERS Safety Report 6382365-7 (Version None)
Quarter: 2009Q3

REPORT INFORMATION
  Report Type: 
  Country: None (occurrence: None)
  Receive Date: 20090928
  Receipt Date: 20090928
  Transmission Date: 20100115
  Serious: Yes (Other)
  Sender: FDA-Public Use
  Company Number: None

PATIENT
  Sex: Male
  Weight: 117.028 kg

DRUGS (4)
  1. SIMVASTATIN [Suspect]
     Indication: CORONARY ARTERY BYPASS
     Dosage: 10 MG 1/DAY ORAL AT BEDTIME
     Route: 048
     Dates: start: 20081201, end: 20090901
  2. METFORMIN HCL [Concomitant]
  3. GLIMIPERIDE [Concomitant]
  4. TRICOR [Concomitant]

REACTIONS (1)
  - DIABETES MELLITUS INADEQUATE CONTROL [None]
